FAERS Safety Report 6039782-4 (Version None)
Quarter: 2009Q1

REPORT INFORMATION
  Report Type: 
  Country: None (occurrence: None)
  Receive Date: 20090116
  Receipt Date: 20090113
  Transmission Date: 20090719
  Serious: Yes (Other)
  Sender: FDA-Public Use
  Company Number: US-BAYER-200839541NA

PATIENT
  Age: 39 Year
  Sex: Female
  Weight: 65 kg

DRUGS (3)
  1. MIRENA [Suspect]
     Indication: CONTRACEPTION
     Route: 015
     Dates: start: 20030101, end: 20081009
  2. MIRENA [Suspect]
     Route: 015
     Dates: start: 20081009, end: 20081111
  3. MIRENA [Suspect]
     Route: 015
     Dates: start: 20081201

REACTIONS (1)
  - UTERINE RUPTURE [None]
